FAERS Safety Report 26100231 (Version 1)
Quarter: 2025Q4

REPORT INFORMATION
  Report Type: Spontaneous
  Country: EU (occurrence: EU)
  Receive Date: 20251128
  Receipt Date: 20251128
  Transmission Date: 20260117
  Serious: Yes (Life-Threatening, Hospitalization)
  Sender: TEVA
  Company Number: None

PATIENT
  Age: 23 Year
  Sex: Male

DRUGS (3)
  1. PACLITAXEL [Suspect]
     Active Substance: PACLITAXEL
     Indication: Testicular embryonal carcinoma stage III
     Dosage: TIME INTERVAL: TOTAL: 250 MG/M2 DAY 1 IN 21-DAY CYCLES, CYCLE 1, PACLITAXEL TEVA EFG, 1 VIAL OF 1...
     Route: 042
     Dates: start: 20250910, end: 20250910
  2. IFOSFAMIDE [Suspect]
     Active Substance: IFOSFAMIDE
     Indication: Testicular embryonal carcinoma stage III
     Dosage: 1.2G/M2 EVERY 12H (DAYS 1 TO 5), 1,000 MG , 1 VIAL
     Route: 042
     Dates: start: 20250910, end: 20250914
  3. CISPLATIN [Suspect]
     Active Substance: CISPLATIN
     Indication: Testicular embryonal carcinoma stage III
     Dosage: 25MG/M2 (DAYS 1 TO 5), EVERY 21 DAYS, EFG 1 VIAL OF 10 ML
     Route: 042
     Dates: start: 20250910, end: 20250914

REACTIONS (3)
  - Agranulocytosis [Recovered/Resolved]
  - Thrombocytopenia [Recovered/Resolved]
  - Skin infection [Recovered/Resolved]

NARRATIVE: CASE EVENT DATE: 20250921
